FAERS Safety Report 10263723 (Version 1)
Quarter: 2014Q2

REPORT INFORMATION
  Report Type: Spontaneous
  Country: US (occurrence: US)
  Receive Date: 20140627
  Receipt Date: 20140627
  Transmission Date: 20141212
  Serious: Yes (Hospitalization)
  Sender: FDA-Public Use
  Company Number: US-GILEAD-2014-0106820

PATIENT
  Sex: Female

DRUGS (3)
  1. LETAIRIS [Suspect]
     Indication: PRODUCT USED FOR UNKNOWN INDICATION
     Dosage: 10 MG, QD
     Route: 065
     Dates: start: 20071009
  2. ADCIRCA [Concomitant]
  3. OXYGEN [Concomitant]

REACTIONS (6)
  - Unevaluable event [Unknown]
  - Unevaluable event [Unknown]
  - Infection [Unknown]
  - Chest pain [Unknown]
  - Chest discomfort [Unknown]
  - Oxygen supplementation [Unknown]
